FAERS Safety Report 5730585-4 (Version None)
Quarter: 2008Q2

REPORT INFORMATION
  Report Type: 
  Country: None (occurrence: None)
  Receive Date: 20080507
  Receipt Date: 20080505
  Transmission Date: 20081010
  Serious: Yes (Hospitalization)
  Sender: FDA-Public Use
  Company Number: A0726197A

PATIENT
  Age: 70 Year
  Sex: Male

DRUGS (4)
  1. COREG [Suspect]
     Indication: DRUG USE FOR UNKNOWN INDICATION
     Dosage: 25MG TWICE PER DAY
     Route: 048
  2. ALTACE [Concomitant]
  3. LIPITOR [Concomitant]
  4. PROTONIX [Concomitant]

REACTIONS (1)
  - ARRHYTHMIA [None]
